FAERS Safety Report 18046536 (Version 2)
Quarter: 2020Q3

REPORT INFORMATION
  Report Type: Spontaneous
  Country: US (occurrence: US)
  Receive Date: 20200720
  Receipt Date: 20200812
  Transmission Date: 20201103
  Serious: No
  Sender: FDA-Public Use
  Company Number: US-BAUSCH-BL-2020-018931

PATIENT
  Sex: Female

DRUGS (1)
  1. TRETINOIN CREAM 0.05% [Suspect]
     Active Substance: TRETINOIN
     Indication: PRODUCT USED FOR UNKNOWN INDICATION
     Dosage: SINGLE USE
     Route: 061
     Dates: start: 20200622, end: 20200622

REACTIONS (7)
  - Erythema [Recovered/Resolved]
  - Skin irritation [Recovered/Resolved]
  - Dry skin [Recovered/Resolved]
  - Skin burning sensation [Recovered/Resolved]
  - Skin exfoliation [Recovered/Resolved]
  - Papule [Recovered/Resolved]
  - Skin weeping [Recovered/Resolved]

NARRATIVE: CASE EVENT DATE: 20200623
